FAERS Safety Report 10160870 (Version 1)
Quarter: 2014Q2

REPORT INFORMATION
  Report Type: Spontaneous
  Country: US (occurrence: US)
  Receive Date: 20140508
  Receipt Date: 20140508
  Transmission Date: 20141212
  Serious: No
  Sender: FDA-Public Use
  Company Number: US-TEVA-480158USA

PATIENT
  Age: 39 Year
  Sex: Female
  Weight: 55.39 kg

DRUGS (8)
  1. PARAGARD 380A [Suspect]
     Indication: CONTRACEPTION
     Route: 015
     Dates: start: 20130910, end: 20140505
  2. LEVOTHYROXINE [Concomitant]
     Indication: THYROID DISORDER
     Dosage: QD
     Route: 048
  3. CLONAZEPAM [Concomitant]
     Indication: ANXIETY
     Dosage: QD
     Route: 048
  4. LISINOPRIL [Concomitant]
     Indication: HYPERTENSION
     Dosage: QD
  5. CELEXA [Concomitant]
     Indication: DEPRESSION
     Route: 048
  6. PROTONIX [Concomitant]
     Indication: GASTROOESOPHAGEAL REFLUX DISEASE
     Dosage: QD
  7. SIMVASTATIN [Concomitant]
     Indication: BLOOD CHOLESTEROL INCREASED
     Dosage: QD
     Route: 048
  8. PRO-AIR [Concomitant]
     Indication: COUGH

REACTIONS (4)
  - Vaginal haemorrhage [Recovered/Resolved]
  - Pelvic pain [Recovered/Resolved]
  - Metrorrhagia [Recovered/Resolved]
  - Pain [Recovered/Resolved]
